FAERS Safety Report 22114882 (Version 2)
Quarter: 2023Q1

REPORT INFORMATION
  Report Type: Report from Study
  Country: US (occurrence: US)
  Receive Date: 20230320
  Receipt Date: 20230321
  Transmission Date: 20230417
  Serious: No
  Sender: FDA-Public Use
  Company Number: US-002147023-NVSC2023US004903

PATIENT
  Sex: Female
  Weight: 114.29 kg

DRUGS (3)
  1. TREPROSTINIL [Suspect]
     Active Substance: TREPROSTINIL
     Indication: Pulmonary arterial hypertension
     Dosage: UNK UNK, CONT (75 NG/KG/MIN)
     Route: 042
     Dates: start: 20210215
  2. TREPROSTINIL [Suspect]
     Active Substance: TREPROSTINIL
     Dosage: UNK UNK, CONT (75 NG/KG/MIN)
     Route: 042
  3. SILDENAFIL CITRATE [Concomitant]
     Active Substance: SILDENAFIL CITRATE
     Indication: Product used for unknown indication
     Dosage: UNK
     Route: 065

REACTIONS (1)
  - Complication associated with device [Unknown]
